FAERS Safety Report 20332123 (Version 1)
Quarter: 2022Q1

REPORT INFORMATION
  Report Type: Spontaneous
  Country: JP (occurrence: JP)
  Receive Date: 20220113
  Receipt Date: 20220113
  Transmission Date: 20220423
  Serious: Yes (Hospitalization)
  Sender: FDA-Public Use
  Company Number: JP-MYLANLABS-2022M1001670

PATIENT
  Age: 6 Decade
  Sex: Male
  Weight: 78 kg

DRUGS (2)
  1. VANCOMYCIN [Suspect]
     Active Substance: VANCOMYCIN
     Indication: Staphylococcal abscess
     Dosage: 1000 MILLIGRAM
     Route: 065
  2. VANCOMYCIN [Suspect]
     Active Substance: VANCOMYCIN
     Dosage: 1250 MILLIGRAM
     Route: 065

REACTIONS (1)
  - Therapy non-responder [Recovering/Resolving]
